FAERS Safety Report 20808117 (Version 1)
Quarter: 2022Q2

REPORT INFORMATION
  Report Type: Spontaneous
  Country: US (occurrence: US)
  Receive Date: 20220510
  Receipt Date: 20220510
  Transmission Date: 20220721
  Serious: No
  Sender: FDA-Public Use
  Company Number: US-TEVA-2022-US-2034036

PATIENT

DRUGS (1)
  1. BUPRENORPHINE [Suspect]
     Active Substance: BUPRENORPHINE
     Indication: Diuretic therapy
     Route: 065
     Dates: start: 2014

REACTIONS (8)
  - Therapeutic product effect decreased [Unknown]
  - Dry mouth [Unknown]
  - Cough [Unknown]
  - Dysphonia [Unknown]
  - Nasal dryness [Unknown]
  - Nasal discomfort [Unknown]
  - Weight increased [Unknown]
  - Mental disorder [Unknown]
